FAERS Safety Report 15690076 (Version 2)
Quarter: 2018Q4

REPORT INFORMATION
  Report Type: Spontaneous
  Country: RO (occurrence: RO)
  Receive Date: 20181205
  Receipt Date: 20181212
  Transmission Date: 20190205
  Serious: Yes (Disabling, Other)
  Sender: FDA-Public Use
  Company Number: RO-HORIZON-VIM-1285-2018

PATIENT
  Sex: Male

DRUGS (1)
  1. VIMOVO [Suspect]
     Active Substance: ESOMEPRAZOLE MAGNESIUM\NAPROXEN
     Indication: PERIARTHRITIS
     Dosage: 500 MG
     Route: 048

REACTIONS (3)
  - Hypoaesthesia [Recovered/Resolved]
  - Hypokinesia [Recovered/Resolved]
  - Paraesthesia [Recovered/Resolved]
